FAERS Safety Report 21508801 (Version 1)
Quarter: 2022Q4

REPORT INFORMATION
  Report Type: Spontaneous
  Country: US (occurrence: US)
  Receive Date: 20221026
  Receipt Date: 20221026
  Transmission Date: 20230113
  Serious: No
  Sender: FDA-Public Use
  Company Number: US-ENDO PHARMACEUTICALS INC-2022-004871

PATIENT
  Age: 41 Year
  Sex: Female

DRUGS (2)
  1. QWO [Suspect]
     Active Substance: COLLAGENASE CLOSTRIDIUM HISTOLYTICUM-AAES
     Indication: Cellulite
     Dosage: UNK UNKNOWN, UNKNOWN (TREATMENT ONE) (12 CUBIC CENTIMETER^S TOTAL PER TREATMENT)
     Route: 065
     Dates: start: 20220509
  2. QWO [Suspect]
     Active Substance: COLLAGENASE CLOSTRIDIUM HISTOLYTICUM-AAES
     Dosage: UNK UNKNOWN, UNKNOWN (TREATMENT TWO) (12 CUBIC CENTIMETER^S TOTAL PER TREATMENT)
     Route: 065
     Dates: start: 20220609

REACTIONS (5)
  - Injection site bruising [Not Recovered/Not Resolved]
  - Skin discolouration [Not Recovered/Not Resolved]
  - Inappropriate schedule of product administration [Unknown]
  - Product preparation issue [Unknown]
  - Off label use [Unknown]

NARRATIVE: CASE EVENT DATE: 20220501
